FAERS Safety Report 19813637 (Version 1)
Quarter: 2021Q3

REPORT INFORMATION
  Report Type: Spontaneous
  Country: MX (occurrence: MX)
  Receive Date: 20210910
  Receipt Date: 20210910
  Transmission Date: 20211014
  Serious: Yes (Other)
  Sender: FDA-Public Use
  Company Number: MX-BAYER-2021-207256

PATIENT
  Age: 4 Year
  Sex: Male
  Weight: 22.4 kg

DRUGS (1)
  1. GADOVIST [Suspect]
     Active Substance: GADOBUTROL
     Indication: MAGNETIC RESONANCE IMAGING HEAD
     Dosage: UNK UNK, ONCE
     Dates: start: 20200129, end: 20200129

REACTIONS (3)
  - Rash [None]
  - Pyrexia [Recovered/Resolved]
  - Tachycardia [None]

NARRATIVE: CASE EVENT DATE: 20200129
